FAERS Safety Report 20087357 (Version 1)
Quarter: 2021Q4

REPORT INFORMATION
  Report Type: Report from Study
  Country: US (occurrence: US)
  Receive Date: 20211118
  Receipt Date: 20211118
  Transmission Date: 20220303
  Serious: Yes (Other)
  Sender: FDA-Public Use
  Company Number: US-KOREA IPSEN Pharma-2019-13402

PATIENT
  Sex: Male

DRUGS (3)
  1. SOMATULINE DEPOT [Suspect]
     Active Substance: LANREOTIDE ACETATE
     Indication: Neuroendocrine tumour
     Dosage: 120MG/0.5ML, 10 YEARS AGO
     Route: 058
  2. SOMATULINE DEPOT [Suspect]
     Active Substance: LANREOTIDE ACETATE
     Indication: Metastatic carcinoid tumour
  3. CREON [Concomitant]
     Active Substance: PANCRELIPASE AMYLASE\PANCRELIPASE LIPASE\PANCRELIPASE PROTEASE

REACTIONS (9)
  - Type 2 diabetes mellitus [Recovering/Resolving]
  - Diarrhoea [Recovering/Resolving]
  - Injection site nodule [Recovered/Resolved]
  - Nerve injury [Unknown]
  - Weight decreased [Unknown]
  - Injection site mass [Recovering/Resolving]
  - Sinusitis [Recovering/Resolving]
  - Product administered at inappropriate site [Unknown]
  - Wrong technique in product usage process [Unknown]
